FAERS Safety Report 4400471-0 (Version None)
Quarter: 2004Q3

REPORT INFORMATION
  Report Type: 
  Country: None (occurrence: None)
  Receive Date: 20040714
  Receipt Date: 20040628
  Transmission Date: 20050211
  Serious: Yes (Life-Threatening, Hospitalization)
  Sender: FDA-Public Use
  Company Number: US_040199817

PATIENT
  Age: 81 Year
  Sex: Male
  Weight: 66 kg

DRUGS (7)
  1. PEMETREXED [Suspect]
     Indication: PLEURAL MESOTHELIOMA
     Dosage: 500 MG/M2 OTHER
     Route: 050
     Dates: start: 20031209, end: 20031230
  2. GEMCITABINE HYDROCHLORIDE-IV (GEMCITABINE) [Suspect]
     Indication: PLEURAL MESOTHELIOMA
     Dosage: 037. 5 MG/M2 OTHER
     Route: 050
     Dates: start: 20031209, end: 20031230
  3. HYTRIN [Concomitant]
  4. FOLATE SODIUM [Concomitant]
  5. DECADRON [Concomitant]
  6. ZOFRAN [Concomitant]
  7. VITAMIN B-12 [Concomitant]

REACTIONS (20)
  - ABDOMINAL PAIN [None]
  - ATRIAL FIBRILLATION [None]
  - BACK PAIN [None]
  - CONSTIPATION [None]
  - DEHYDRATION [None]
  - DUODENAL ULCER PERFORATION [None]
  - HYPOVOLAEMIA [None]
  - NAUSEA [None]
  - NEUTROPENIA [None]
  - PERITONITIS [None]
  - POST PROCEDURAL COMPLICATION [None]
  - PROCEDURAL COMPLICATION [None]
  - PROCEDURAL HYPOTENSION [None]
  - RESPIRATORY FAILURE [None]
  - SEPSIS [None]
  - SUBDIAPHRAGMATIC ABSCESS [None]
  - SUPRAVENTRICULAR TACHYCARDIA [None]
  - VOMITING [None]
  - WHITE BLOOD CELL COUNT DECREASED [None]
  - WOUND ABSCESS [None]
